FAERS Safety Report 19911911 (Version 1)
Quarter: 2021Q4

REPORT INFORMATION
  Report Type: Spontaneous
  Country: US (occurrence: US)
  Receive Date: 20211003
  Receipt Date: 20211003
  Transmission Date: 20220303
  Serious: Yes (Other)
  Sender: FDA-Public Use
  Company Number: None

PATIENT
  Age: 37 Year
  Sex: Male
  Weight: 94.05 kg

DRUGS (1)
  1. TINACTIN [Suspect]
     Active Substance: TOLNAFTATE
     Indication: Fungal skin infection
     Dosage: ?          QUANTITY:30 SPRAY(S);
     Route: 062
     Dates: start: 20210601, end: 20210930

REACTIONS (2)
  - Skin exfoliation [None]
  - Sensitive skin [None]

NARRATIVE: CASE EVENT DATE: 20210901
